FAERS Safety Report 7776851-2 (Version None)
Quarter: 2011Q3

REPORT INFORMATION
  Report Type: 
  Country: None (occurrence: None)
  Receive Date: 20110926
  Receipt Date: 20110913
  Transmission Date: 20111222
  Serious: Yes (Hospitalization)
  Sender: FDA-Public Use
  Company Number: JP-ELI_LILLY_AND_COMPANY-JP201108008655

PATIENT
  Age: 74 Year
  Sex: Female

DRUGS (2)
  1. CALCIUM CARBONATE [Concomitant]
     Route: 048
  2. FORTEO [Suspect]
     Route: 058

REACTIONS (3)
  - HALLUCINATION [None]
  - CEREBRAL INFARCTION [None]
  - FEELING ABNORMAL [None]
